FAERS Safety Report 23050482 (Version 1)
Quarter: 2023Q4

REPORT INFORMATION
  Report Type: Spontaneous
  Country: US (occurrence: None)
  Receive Date: 20231009
  Receipt Date: 20231009
  Transmission Date: 20240110
  Serious: Yes (Other)
  Sender: FDA-Public Use
  Company Number: None

PATIENT
  Age: 52 Year
  Sex: Female
  Weight: 71.1 kg

DRUGS (1)
  1. SEMAGLUTIDE [Suspect]
     Active Substance: SEMAGLUTIDE
     Indication: Weight decreased
     Dosage: FREQUENCY : WEEKLY;?
     Route: 058
     Dates: start: 20230303, end: 20230903

REACTIONS (1)
  - Alopecia [None]

NARRATIVE: CASE EVENT DATE: 20230909
